FAERS Safety Report 4771053-6 (Version None)
Quarter: 2005Q3

REPORT INFORMATION
  Report Type: 
  Country: None (occurrence: None)
  Receive Date: 20050915
  Receipt Date: 20040715
  Transmission Date: 20060218
  Serious: Yes (Hospitalization)
  Sender: FDA-Public Use
  Company Number: JP-ABBOTT-04P-087-0267611-00

PATIENT
  Sex: Male

DRUGS (11)
  1. NORVIR [Suspect]
     Indication: HIV INFECTION
     Route: 048
     Dates: start: 19991108
  2. NORVIR [Suspect]
     Route: 048
     Dates: start: 19990722, end: 19991107
  3. STAVUDINE [Concomitant]
     Indication: HIV INFECTION
     Route: 048
     Dates: start: 19990517
  4. SAQUINAVIR [Concomitant]
     Indication: HIV INFECTION
     Route: 048
     Dates: start: 19990517, end: 19990721
  5. SAQUINAVIR [Concomitant]
     Route: 048
     Dates: start: 19990722, end: 19991107
  6. SAQUINAVIR [Concomitant]
     Route: 048
     Dates: start: 19991108
  7. EFAVIRENZ [Concomitant]
     Indication: HIV INFECTION
     Route: 048
     Dates: start: 19990517
  8. SULFAMETHOXAZOLE [Concomitant]
     Indication: INFECTION PROPHYLAXIS
     Route: 048
     Dates: start: 19960601, end: 20030706
  9. FLUCONAZOLE [Concomitant]
     Indication: MENINGITIS CRYPTOCOCCAL
     Route: 048
     Dates: start: 19970801
  10. ACYCLOVIR [Concomitant]
     Indication: HERPES VIRUS INFECTION
     Route: 048
     Dates: start: 19940101, end: 20030706
  11. BROTIZOLAM [Concomitant]
     Indication: INSOMNIA
     Route: 048
     Dates: start: 19970101, end: 20040406

REACTIONS (3)
  - ABSCESS [None]
  - CHOLECYSTITIS [None]
  - CHOLELITHIASIS [None]
